FAERS Safety Report 8530937-3 (Version None)
Quarter: 2012Q3

REPORT INFORMATION
  Report Type: 
  Country: None (occurrence: None)
  Receive Date: 20120723
  Receipt Date: 20120711
  Transmission Date: 20120928
  Serious: No
  Sender: FDA-Public Use
  Company Number: US-JNJFOC-20120707968

PATIENT
  Sex: Male
  Weight: 95.26 kg

DRUGS (4)
  1. MORPHINE SULFATE [Concomitant]
     Indication: BREAKTHROUGH PAIN
     Dosage: AS NEEDED/ PO
     Route: 048
     Dates: start: 20120601
  2. FENTANYL-100 [Suspect]
     Indication: BACK PAIN
     Route: 062
     Dates: start: 20120606, end: 20120701
  3. FENTANYL-100 [Suspect]
     Route: 062
     Dates: start: 20120701
  4. WELLBUTRIN [Concomitant]
     Indication: DEPRESSION
     Route: 048

REACTIONS (4)
  - PRODUCT QUALITY ISSUE [None]
  - DRUG EFFECT DECREASED [None]
  - INADEQUATE ANALGESIA [None]
  - POOR QUALITY DRUG ADMINISTERED [None]
